FAERS Safety Report 24145304 (Version 1)
Quarter: 2024Q3

REPORT INFORMATION
  Report Type: Spontaneous
  Country: US (occurrence: US)
  Receive Date: 20240729
  Receipt Date: 20240729
  Transmission Date: 20241017
  Serious: No
  Sender: ROCHE
  Company Number: US-ROCHE-10000028363

PATIENT
  Age: 79 Year
  Sex: Female
  Weight: 71.67 kg

DRUGS (4)
  1. RITUXAN [Suspect]
     Active Substance: RITUXIMAB
     Indication: Rheumatoid arthritis
     Dosage: RECEIVED TWO LOADING DOSES
     Route: 042
     Dates: start: 202312, end: 202312
  2. PREDNISONE [Concomitant]
     Active Substance: PREDNISONE
     Indication: Rheumatoid arthritis
     Dosage: ONE TO TWO TABLETS AS NEEDED.
     Route: 048
     Dates: end: 202407
  3. PREDNISONE [Concomitant]
     Active Substance: PREDNISONE
     Dosage: ONE TO TWO TABLETS AS NEEDED.
     Route: 048
     Dates: end: 202407
  4. TYLENOL [Concomitant]
     Active Substance: ACETAMINOPHEN
     Indication: Pain
     Dosage: LAST DOSE TWO TO THREE DAYS AGO.
     Route: 048
     Dates: start: 202312

REACTIONS (4)
  - Insomnia [Not Recovered/Not Resolved]
  - Pruritus [Not Recovered/Not Resolved]
  - Pruritus [Not Recovered/Not Resolved]
  - Dry skin [Not Recovered/Not Resolved]

NARRATIVE: CASE EVENT DATE: 20231201
